FAERS Safety Report 8043055 (Version 4)
Quarter: 2014Q1

REPORT INFORMATION
  Report Type: Spontaneous
  Country: US (occurrence: US)
  Receive Date: 20110719
  Receipt Date: 20140221
  Transmission Date: 20141002
  Serious: Yes (Life-Threatening, Hospitalization, Other)
  Sender: FDA-Public Use
  Company Number: US-RANBAXY-2011US-46079

PATIENT
  Age: 82 Year
  Sex: Male

DRUGS (2)
  1. ISOTRETINOIN [Suspect]
     Indication: SKIN CANCER METASTATIC
     Dosage: 10 MG, DAILY
     Route: 048
  2. WARFARIN [Interacting]
     Indication: PRODUCT USED FOR UNKNOWN INDICATION
     Dosage: 4MG, DAILY
     Route: 065

REACTIONS (13)
  - Epistaxis [Unknown]
  - Lip dry [Unknown]
  - Personality change [Unknown]
  - Disturbance in attention [Unknown]
  - Irritability [Unknown]
  - Oedema peripheral [Unknown]
  - Dry eye [Unknown]
  - Pruritus [Unknown]
  - Dyspnoea [Unknown]
  - Drug interaction [Unknown]
  - Cardiac failure congestive [Unknown]
  - Off label use [Unknown]
  - International normalised ratio increased [Unknown]
